FAERS Safety Report 6825471-2 (Version None)
Quarter: 2010Q3

REPORT INFORMATION
  Report Type: 
  Country: None (occurrence: None)
  Receive Date: 20100708
  Receipt Date: 20070201
  Transmission Date: 20110219
  Serious: Yes (Other)
  Sender: FDA-Public Use
  Company Number: US-PFIZER INC-2007002228

PATIENT
  Sex: Female
  Weight: 65.8 kg

DRUGS (3)
  1. CHANTIX [Suspect]
     Indication: EX-TOBACCO USER
     Route: 048
     Dates: start: 20061201
  2. PRILOSEC [Concomitant]
  3. SYNTHROID [Concomitant]

REACTIONS (7)
  - ASTHMA [None]
  - DRY MOUTH [None]
  - FATIGUE [None]
  - MALAISE [None]
  - NAUSEA [None]
  - POLYDIPSIA [None]
  - VOMITING [None]
